FAERS Safety Report 8603116-9 (Version None)
Quarter: 2012Q3

REPORT INFORMATION
  Report Type: 
  Country: None (occurrence: None)
  Receive Date: 20120817
  Receipt Date: 20120213
  Transmission Date: 20120928
  Serious: No
  Sender: FDA-Public Use
  Company Number: US-GLAXOSMITHKLINE-A0965603A

PATIENT
  Age: 57 Year
  Sex: Male

DRUGS (2)
  1. TAGAMET HB 200 [Suspect]
     Indication: DYSPEPSIA
  2. HEART MEDICATION [Concomitant]

REACTIONS (1)
  - DRUG INEFFECTIVE [None]
